FAERS Safety Report 20952262 (Version 1)
Quarter: 2022Q2

REPORT INFORMATION
  Report Type: Spontaneous
  Country: DE (occurrence: DE)
  Receive Date: 20220613
  Receipt Date: 20220613
  Transmission Date: 20220721
  Serious: Yes (Other)
  Sender: FDA-Public Use
  Company Number: DE-009507513-2205DEU008320

PATIENT
  Age: 53 Year
  Sex: Female

DRUGS (12)
  1. FLUOROURACIL [Suspect]
     Active Substance: FLUOROURACIL
     Indication: Product used for unknown indication
     Dosage: UNK, 8 CYCLES 5-FU MAINTENANCE
     Dates: start: 202008, end: 202102
  2. FLUOROURACIL [Suspect]
     Active Substance: FLUOROURACIL
     Dosage: UNK, 3 CYCLES CISPLATIN/5FU
     Dates: start: 202006, end: 202008
  3. FLUOROURACIL [Suspect]
     Active Substance: FLUOROURACIL
     Dosage: UNK, COMBINED WITH PEMBRO AND CISPLATIN
     Dates: start: 20210929, end: 2021
  4. FLUOROURACIL [Suspect]
     Active Substance: FLUOROURACIL
     Dosage: UNK, 4 CYCLES CISPLATIN/5FU
     Dates: start: 202004, end: 202006
  5. FLUOROURACIL [Suspect]
     Active Substance: FLUOROURACIL
     Dosage: UNK, 3 CYCLES COMBINED WITH PEMBROLIZUMAB
     Dates: start: 202112
  6. PEMBROLIZUMAB [Suspect]
     Active Substance: PEMBROLIZUMAB
     Indication: Oesophageal carcinoma
     Dosage: 200 MILLIGRAM, (10 CYCLES PEMBROLIZUMAB MONO)
     Dates: start: 202102, end: 202109
  7. PEMBROLIZUMAB [Suspect]
     Active Substance: PEMBROLIZUMAB
     Dosage: 200 MILLIGRAM, MAINTENANCE MONOTHERAPY
     Dates: start: 202202
  8. PEMBROLIZUMAB [Suspect]
     Active Substance: PEMBROLIZUMAB
     Dosage: 200 MILLIGRAM, 3 CYCLES COMBINED WITH 5-FU
     Dates: start: 202112
  9. PEMBROLIZUMAB [Suspect]
     Active Substance: PEMBROLIZUMAB
     Dosage: UNK, 3 CYCLES COMBINED WITH CISPLATIN AND 5-FU
     Dates: start: 20210929
  10. CISPLATIN [Suspect]
     Active Substance: CISPLATIN
     Indication: Oesophageal carcinoma
     Dosage: UNK, 3 CYCLES CISPLATIN/5FU
     Dates: start: 202006, end: 202008
  11. CISPLATIN [Suspect]
     Active Substance: CISPLATIN
     Dosage: UNK, COMBINED WITH PEMBRO AND 5-FU
     Dates: start: 20210929, end: 2021
  12. CISPLATIN [Suspect]
     Active Substance: CISPLATIN
     Dosage: UNK, 4 CYCLES CISPLATIN/5FU
     Dates: start: 202004, end: 202006

REACTIONS (3)
  - Malignant neoplasm progression [Unknown]
  - Therapy partial responder [Unknown]
  - Product use in unapproved indication [Unknown]

NARRATIVE: CASE EVENT DATE: 20210915
